FAERS Safety Report 6966349-3 (Version None)
Quarter: 2010Q3

REPORT INFORMATION
  Report Type: 
  Country: None (occurrence: None)
  Receive Date: 20100903
  Receipt Date: 20100827
  Transmission Date: 20110219
  Serious: Yes (Hospitalization)
  Sender: FDA-Public Use
  Company Number: JP-ROCHE-717354

PATIENT
  Sex: Male
  Weight: 35.9 kg

DRUGS (35)
  1. ACTEMRA [Suspect]
     Indication: JUVENILE ARTHRITIS
     Dosage: FORM:INJECTION
     Route: 041
     Dates: start: 20080610, end: 20080626
  2. ACTEMRA [Suspect]
     Route: 041
     Dates: start: 20080626, end: 20080821
  3. ACTEMRA [Suspect]
     Route: 041
     Dates: start: 20080904
  4. PREDNISOLONE [Concomitant]
     Dosage: FORM:PERORAL AGENT.
     Route: 048
     Dates: end: 20080710
  5. PREDNISOLONE [Concomitant]
     Route: 048
     Dates: start: 20080711, end: 20080724
  6. PREDNISOLONE [Concomitant]
     Route: 048
     Dates: start: 20080725, end: 20080821
  7. PREDNISOLONE [Concomitant]
     Route: 048
     Dates: start: 20080822, end: 20080904
  8. PREDNISOLONE [Concomitant]
     Route: 048
     Dates: start: 20080905, end: 20080918
  9. PREDNISOLONE [Concomitant]
     Route: 048
     Dates: start: 20080919, end: 20081003
  10. PREDNISOLONE [Concomitant]
     Route: 048
     Dates: start: 20081004, end: 20081016
  11. PREDNISOLONE [Concomitant]
     Route: 048
     Dates: start: 20081017, end: 20081031
  12. PREDNISOLONE [Concomitant]
     Route: 048
     Dates: start: 20081101, end: 20081113
  13. PREDNISOLONE [Concomitant]
     Route: 048
     Dates: start: 20081114, end: 20081127
  14. PREDNISOLONE [Concomitant]
     Route: 048
     Dates: start: 20081128, end: 20090219
  15. PREDNISOLONE [Concomitant]
     Route: 048
     Dates: start: 20090220, end: 20090305
  16. PREDNISOLONE [Concomitant]
     Route: 048
     Dates: start: 20090306, end: 20090319
  17. PREDNISOLONE [Concomitant]
     Route: 048
     Dates: start: 20090320, end: 20090402
  18. PREDNISOLONE [Concomitant]
     Route: 048
     Dates: start: 20090403, end: 20090416
  19. PREDNISOLONE [Concomitant]
     Route: 048
     Dates: start: 20090417
  20. PREDNISOLONE [Concomitant]
     Route: 048
  21. ONEALFA [Concomitant]
     Dosage: FORM:PERORAL AGENT.
     Route: 048
  22. ONEALFA [Concomitant]
     Route: 048
  23. AMLODIPINE BESYLATE [Concomitant]
     Route: 048
  24. NU-LOTAN [Concomitant]
     Route: 048
  25. ISODINE [Concomitant]
     Dosage: FORM: INCLUDE ASPECT, ROUTE:OROPHARINGEAL, PROPER QUANTITY
     Route: 050
  26. NAIXAN [Concomitant]
     Dosage: FORM:PERORAL AGENT.
     Route: 048
  27. ULCERLMIN [Concomitant]
     Dosage: FORM:MINUTE GRAIN.
     Route: 048
  28. BONALON [Concomitant]
     Route: 048
  29. MEIACT [Concomitant]
     Route: 048
     Dates: start: 20080701, end: 20080705
  30. MIYA BM [Concomitant]
     Route: 048
     Dates: start: 20080701, end: 20080705
  31. ACTONEL [Concomitant]
     Route: 048
     Dates: start: 20100625
  32. RHEUMATREX [Concomitant]
     Route: 048
     Dates: start: 20090601
  33. PROGRAF [Concomitant]
     Route: 048
     Dates: start: 20100302
  34. FLOMOX [Concomitant]
     Route: 048
     Dates: start: 20100625, end: 20100702
  35. BIOFERMIN [Concomitant]
     Route: 048
     Dates: start: 20100625, end: 20100702

REACTIONS (1)
  - FASCIITIS [None]
